FAERS Safety Report 23492872 (Version 2)
Quarter: 2024Q1

REPORT INFORMATION
  Report Type: Spontaneous
  Country: US (occurrence: US)
  Receive Date: 20240207
  Receipt Date: 20240215
  Transmission Date: 20240410
  Serious: Yes (Hospitalization, Other)
  Sender: FDA-Public Use
  Company Number: US-Accord-404870

PATIENT
  Age: 77 Year
  Sex: Male
  Weight: 84 kg

DRUGS (21)
  1. CARBOPLATIN [Suspect]
     Active Substance: CARBOPLATIN
     Indication: Non-small cell lung cancer metastatic
     Dosage: 5 AUC, 1Q3W
     Route: 042
     Dates: start: 20230925, end: 20231127
  2. PEMETREXED [Suspect]
     Active Substance: PEMETREXED
     Indication: Non-small cell lung cancer metastatic
     Dosage: 1Q3W
     Route: 042
     Dates: start: 20230925, end: 20231218
  3. PEMBROLIZUMAB [Concomitant]
     Active Substance: PEMBROLIZUMAB
     Indication: Non-small cell lung cancer metastatic
     Dosage: 200 MILLIGRAM, 1Q3W
     Route: 042
     Dates: start: 20230925, end: 20231218
  4. LIPITOR [Concomitant]
     Active Substance: ATORVASTATIN CALCIUM
     Dates: start: 20190304
  5. CELEBREX [Concomitant]
     Active Substance: CELECOXIB
     Dates: start: 20120313
  6. FENOFIBRATE [Concomitant]
     Active Substance: FENOFIBRATE
     Dates: start: 20120411
  7. ECOTRIN [Concomitant]
     Active Substance: ASPIRIN
     Dates: start: 20231004
  8. FOLATE SODIUM [Concomitant]
     Active Substance: FOLATE SODIUM
     Dates: start: 20231004
  9. HERBALS\TURMERIC [Concomitant]
     Active Substance: HERBALS\TURMERIC
     Dates: start: 20190304
  10. METAMUCIL [Concomitant]
     Active Substance: PLANTAGO SEED
     Dates: start: 20120411
  11. FISH OIL [Concomitant]
     Active Substance: FISH OIL
     Dates: start: 20120411
  12. ZESTRIL [Concomitant]
     Active Substance: LISINOPRIL
     Dates: start: 20121221
  13. TESTOSTERONE CYPIONATE [Concomitant]
     Active Substance: TESTOSTERONE CYPIONATE
     Dates: start: 20120411
  14. ZOFRAN [Concomitant]
     Active Substance: ONDANSETRON HYDROCHLORIDE
     Dates: start: 20230922
  15. DECADRON [Concomitant]
     Active Substance: DEXAMETHASONE
     Dates: start: 20230925
  16. COMPAZINE [Concomitant]
     Active Substance: PROCHLORPERAZINE MALEATE
     Dates: start: 20230925
  17. SARNA (PRAMOXINE HYDROCHLORIDE) [Concomitant]
     Active Substance: PRAMOXINE HYDROCHLORIDE
     Dosage: 1 PERCENT
     Dates: start: 20231004
  18. REMERON [Concomitant]
     Active Substance: MIRTAZAPINE
     Dates: start: 20231004
  19. FOSAPREPITANT [Concomitant]
     Active Substance: FOSAPREPITANT
     Dates: start: 20230925
  20. ALOXI [Concomitant]
     Active Substance: PALONOSETRON HYDROCHLORIDE
     Dates: start: 20230925
  21. XGEVA [Concomitant]
     Active Substance: DENOSUMAB
     Dates: start: 20230925

REACTIONS (3)
  - Hypercalcaemia [Not Recovered/Not Resolved]
  - Asthenia [Not Recovered/Not Resolved]
  - Hemiparesis [Recovered/Resolved]

NARRATIVE: CASE EVENT DATE: 20240108
